FAERS Safety Report 6449835-4 (Version None)
Quarter: 2009Q4

REPORT INFORMATION
  Report Type: 
  Country: None (occurrence: None)
  Receive Date: 20091120
  Receipt Date: 20091110
  Transmission Date: 20100525
  Serious: Yes (Other)
  Sender: FDA-Public Use
  Company Number: US-JNJCH-2009029596

PATIENT
  Age: 52 Year
  Sex: Female
  Weight: 59 kg

DRUGS (2)
  1. VISINE TOTALITY MULTI-SYMPTOM RELIEF [Suspect]
     Indication: DRY EYE
     Dosage: TEXT:1 DROP IN EACH EYE ONCE
     Route: 047
  2. GOODYS POWDERS [Concomitant]
     Indication: PAIN
     Dosage: TEXT:1 OR 2 TWICE WEEKLY
     Route: 065

REACTIONS (2)
  - CAUSTIC INJURY [None]
  - VISION BLURRED [None]
